FAERS Safety Report 15772209 (Version 1)
Quarter: 2018Q4

REPORT INFORMATION
  Report Type: Spontaneous
  Country: AU (occurrence: AU)
  Receive Date: 20181228
  Receipt Date: 20181228
  Transmission Date: 20190205
  Serious: Yes (Other)
  Sender: FDA-Public Use
  Company Number: AU-SAKK-2018SA393784AA

PATIENT

DRUGS (1)
  1. ENOXAPARIN SODIUM. [Suspect]
     Active Substance: ENOXAPARIN SODIUM
     Dosage: 140 MG, QD
     Route: 058

REACTIONS (3)
  - Thyroiditis [Unknown]
  - Blood thyroid stimulating hormone increased [Unknown]
  - Thyroxine increased [Unknown]
